FAERS Safety Report 13838125 (Version 2)
Quarter: 2017Q3

REPORT INFORMATION
  Report Type: Spontaneous
  Country: BR (occurrence: BR)
  Receive Date: 20170807
  Receipt Date: 20170808
  Transmission Date: 20171127
  Serious: Yes (Other)
  Sender: FDA-Public Use
  Company Number: BR-009507513-1708BRA002498

PATIENT
  Age: 31 Year
  Sex: Female
  Weight: 78 kg

DRUGS (2)
  1. IMPLANON [Suspect]
     Active Substance: ETONOGESTREL
     Dosage: 1 IMPLANT, 3 YEARS; LEFT ARM
     Route: 059
     Dates: start: 2013, end: 2016
  2. IMPLANON [Suspect]
     Active Substance: ETONOGESTREL
     Dosage: 1 IMPLANT, UNK; RIGHT ARM
     Dates: start: 20160602, end: 2017

REACTIONS (18)
  - Implant site inflammation [Not Recovered/Not Resolved]
  - Hypersensitivity [Unknown]
  - Back pain [Unknown]
  - Impaired healing [Not Recovered/Not Resolved]
  - Implant site pain [Recovered/Resolved]
  - Impaired healing [Recovered/Resolved]
  - Post procedural haemorrhage [Recovered/Resolved]
  - Implant site discharge [Recovered/Resolved]
  - Discomfort [Not Recovered/Not Resolved]
  - Device deployment issue [Recovered/Resolved]
  - Implant site inflammation [Recovered/Resolved]
  - Implant site discharge [Not Recovered/Not Resolved]
  - Localised infection [Unknown]
  - Device expulsion [Recovered/Resolved]
  - Implant site pain [Not Recovered/Not Resolved]
  - Device expulsion [Unknown]
  - Implant site scar [Not Recovered/Not Resolved]
  - Device expulsion [Not Recovered/Not Resolved]

NARRATIVE: CASE EVENT DATE: 2016
